FAERS Safety Report 23875397 (Version 1)
Quarter: 2024Q2

REPORT INFORMATION
  Report Type: Spontaneous
  Country: CA (occurrence: US)
  Receive Date: 20240520
  Receipt Date: 20240520
  Transmission Date: 20240716
  Serious: No
  Sender: FDA-Public Use
  Company Number: CA-TEVA-VS-3194724

PATIENT
  Age: 56 Year
  Sex: Male

DRUGS (1)
  1. UZEDY [Suspect]
     Active Substance: RISPERIDONE
     Indication: Schizoaffective disorder
     Dosage: 100 MG/0.28ML
     Route: 065
     Dates: start: 20240307

REACTIONS (1)
  - Product use in unapproved indication [Unknown]
